FAERS Safety Report 9393471 (Version 3)
Quarter: 2014Q2

REPORT INFORMATION
  Report Type: Spontaneous
  Country: DK (occurrence: DK)
  Receive Date: 20130710
  Receipt Date: 20140416
  Transmission Date: 20141212
  Serious: Yes (Hospitalization)
  Sender: FDA-Public Use
  Company Number: PHHY2013DK071642

PATIENT
  Sex: Male
  Weight: 56 kg

DRUGS (4)
  1. OLANZAPINE [Suspect]
     Indication: SCHIZOPHRENIA
     Dosage: 5 MG, BID
     Route: 048
     Dates: start: 1998, end: 201402
  2. RIVOTRIL [Concomitant]
     Indication: SCHIZOPHRENIA
     Route: 048
     Dates: start: 1998, end: 201207
  3. NEXIUM [Concomitant]
     Indication: ULCER
     Dosage: 40 MG, QD
     Route: 048
     Dates: start: 2011
  4. CALCICHEW [Concomitant]
     Indication: OSTEOPOROSIS
     Route: 048
     Dates: start: 2010

REACTIONS (13)
  - Mental impairment [Recovering/Resolving]
  - Dysphagia [Recovering/Resolving]
  - Muscular weakness [Recovering/Resolving]
  - Loss of consciousness [Recovering/Resolving]
  - Amnesia [Recovering/Resolving]
  - Disorientation [Recovering/Resolving]
  - Disturbance in attention [Recovering/Resolving]
  - Facial paresis [Recovering/Resolving]
  - Slow response to stimuli [Recovering/Resolving]
  - Impaired driving ability [Recovering/Resolving]
  - Gait disturbance [Recovering/Resolving]
  - Pneumonia [Recovered/Resolved]
  - Speech disorder [Recovering/Resolving]
